FAERS Safety Report 8769387 (Version 1)
Quarter: 2012Q4

REPORT INFORMATION
  Report Type: 
  Country: US (occurrence: US)
  Receive Date: 20120905
  Receipt Date: 20120905
  Transmission Date: 20130627
  Serious: Yes (Hospitalization)
  Sender: FDA-Public Use
  Company Number: US-MYLANLABS-2012S1017590

PATIENT
  Age: 33 Year
  Sex: Male

DRUGS (1)
  1. QUETIAPINE [Suspect]
     Indication: OVERDOSE
     Route: 065

REACTIONS (2)
  - Overdose [Recovered/Resolved]
  - Mental status changes [Recovered/Resolved]
